FAERS Safety Report 12147271 (Version 2)
Quarter: 2016Q2

REPORT INFORMATION
  Report Type: Spontaneous
  Country: US (occurrence: US)
  Receive Date: 20160304
  Receipt Date: 20160426
  Transmission Date: 20160815
  Serious: Yes (Other)
  Sender: FDA-Public Use
  Company Number: US-ALKERMES INC.-ALK-2016-000220

PATIENT

DRUGS (1)
  1. VIVITROL [Suspect]
     Active Substance: NALTREXONE
     Indication: DRUG DEPENDENCE
     Dosage: 380 MG, QMO
     Route: 030
     Dates: start: 20160107, end: 2016

REACTIONS (8)
  - Blood alkaline phosphatase increased [Recovering/Resolving]
  - Headache [Recovering/Resolving]
  - Alanine aminotransferase increased [Recovering/Resolving]
  - Dizziness [Unknown]
  - Asthenia [Unknown]
  - Drug dose omission [Recovered/Resolved]
  - Aspartate aminotransferase increased [Recovering/Resolving]
  - Hepatitis C antibody positive [Unknown]

NARRATIVE: CASE EVENT DATE: 20160128
